FAERS Safety Report 25230997 (Version 1)
Quarter: 2025Q2

REPORT INFORMATION
  Report Type: Spontaneous
  Country: US (occurrence: US)
  Receive Date: 20250423
  Receipt Date: 20250423
  Transmission Date: 20250717
  Serious: No
  Sender: SANOFI AVENTIS
  Company Number: US-SA-2025SA116906

PATIENT
  Sex: Female
  Weight: 72.73 kg

DRUGS (6)
  1. DUPIXENT [Suspect]
     Active Substance: DUPILUMAB
     Indication: Asthma
     Route: 058
  2. TOPIRAMATE [Concomitant]
     Active Substance: TOPIRAMATE
  3. EPINEPHRINE [Concomitant]
     Active Substance: EPINEPHRINE
  4. ITRACONAZOLE [Concomitant]
     Active Substance: ITRACONAZOLE
  5. MONTELUKAST SODIUM [Concomitant]
     Active Substance: MONTELUKAST SODIUM
  6. ASPIRIN [Concomitant]
     Active Substance: ASPIRIN

REACTIONS (1)
  - Drug hypersensitivity [Unknown]
